FAERS Safety Report 5982544-4 (Version None)
Quarter: 2008Q4

REPORT INFORMATION
  Report Type: 
  Country: None (occurrence: None)
  Receive Date: 20081208
  Receipt Date: 20081126
  Transmission Date: 20090506
  Serious: Yes (Hospitalization)
  Sender: FDA-Public Use
  Company Number: PHHY2008JP29763

PATIENT
  Age: 77 Year
  Sex: Male

DRUGS (1)
  1. ICL670A ICL+DISTAB [Suspect]
     Indication: IRON OVERLOAD
     Route: 048

REACTIONS (1)
  - JAUNDICE [None]
